FAERS Safety Report 11659578 (Version 4)
Quarter: 2016Q1

REPORT INFORMATION
  Report Type: Spontaneous
  Country: AU (occurrence: AU)
  Receive Date: 20151026
  Receipt Date: 20160318
  Transmission Date: 20160525
  Serious: Yes (Other)
  Sender: FDA-Public Use
  Company Number: AU-ACTAVIS PTY LTD-2015-22982

PATIENT
  Sex: Male
  Weight: 3.61 kg

DRUGS (4)
  1. QUETIAPINE (UNKNOWN) [Suspect]
     Active Substance: QUETIAPINE
     Indication: BIPOLAR DISORDER
     Dosage: 600 MG, DAILY
     Route: 064
  2. LAMOTRIGINE (UNKNOWN) [Suspect]
     Active Substance: LAMOTRIGINE
     Dosage: 500 MG, DAILY
     Route: 064
  3. THYROXINE [Concomitant]
     Active Substance: LEVOTHYROXINE
     Indication: HYPOTHYROIDISM
     Dosage: 100 ?G, DAILY
     Route: 065
  4. LAMOTRIGINE (UNKNOWN) [Suspect]
     Active Substance: LAMOTRIGINE
     Indication: BIPOLAR DISORDER
     Dosage: 400 MG, DAILY
     Route: 064

REACTIONS (2)
  - Neonatal behavioural syndrome [Recovered/Resolved]
  - Foetal exposure during pregnancy [Unknown]
